FAERS Safety Report 17598147 (Version 1)
Quarter: 2020Q1

REPORT INFORMATION
  Report Type: Spontaneous
  Country: ES (occurrence: ES)
  Receive Date: 20200330
  Receipt Date: 20200330
  Transmission Date: 20200409
  Serious: Yes (Other)
  Sender: FDA-Public Use
  Company Number: ES-ACCORD-177326

PATIENT
  Age: 76 Year
  Sex: Female

DRUGS (4)
  1. DICLOFENAC [Concomitant]
     Active Substance: DICLOFENAC
     Dosage: THRICE DAILY, STRENGTH 1MG/ML, 1 DROP THREE TIMES DAILY FOR TWO WEEKS
     Route: 047
     Dates: start: 2016, end: 2016
  2. MITOMYCIN. [Suspect]
     Active Substance: MITOMYCIN
     Indication: SCAR
     Dosage: MITOMYCIN C WAS APPLIED UNDER THE CONJUNCTIVA FOR 40 S
     Route: 047
     Dates: start: 20161115, end: 20161115
  3. VIGAMOX [Suspect]
     Active Substance: MOXIFLOXACIN HYDROCHLORIDE
     Indication: PROPHYLAXIS
     Dosage: 0.1ML OF 5MG/ML, STRENGTH 5 MG/ML, 5MG/ML 1 DROP 4 TIMES DAILY FOR TEN DAYS, EYE DROP TOPICAL
     Route: 031
     Dates: start: 20161115, end: 20161115
  4. PREDNISOLONE. [Concomitant]
     Active Substance: PREDNISOLONE
     Dosage: THRICE DAILY, ONE DROP 10MG/ML STARTING 6 TIMES DAILY  AND TO TAPER IT SLOWLY, STRENGTH 10MG/ML
     Route: 047
     Dates: start: 2016

REACTIONS (2)
  - Iris transillumination defect [Recovered/Resolved]
  - Iris hyperpigmentation [Recovered/Resolved]

NARRATIVE: CASE EVENT DATE: 2016
